FAERS Safety Report 12630080 (Version 3)
Quarter: 2017Q4

REPORT INFORMATION
  Report Type: Spontaneous
  Country: US (occurrence: US)
  Receive Date: 20160808
  Receipt Date: 20171018
  Transmission Date: 20180320
  Serious: Yes (Other)
  Sender: FDA-Public Use
  Company Number: US-PFIZER INC-2016374427

PATIENT
  Age: 63 Year
  Sex: Female

DRUGS (30)
  1. METFORMIN [Suspect]
     Active Substance: METFORMIN HYDROCHLORIDE
     Dosage: UNK
  2. METOPROLOL. [Concomitant]
     Active Substance: METOPROLOL
     Dosage: UNK
  3. FLUOROURACIL. [Suspect]
     Active Substance: FLUOROURACIL
     Dosage: 6 CYCLES
     Dates: start: 201105
  4. FLUOROURACIL. [Suspect]
     Active Substance: FLUOROURACIL
     Dosage: UNK
     Dates: start: 2007
  5. FOLINIC ACID [Suspect]
     Active Substance: LEUCOVORIN
     Indication: METASTASES TO PERITONEUM
     Dosage: 6 CYCLES
     Dates: start: 201105
  6. AVASTIN [Suspect]
     Active Substance: BEVACIZUMAB
     Indication: METASTASES TO PERITONEUM
     Dosage: UNK
     Dates: start: 201210
  7. CITALOPRAM [Concomitant]
     Active Substance: CITALOPRAM HYDROBROMIDE
     Dosage: UNK
  8. LIPITOR [Concomitant]
     Active Substance: ATORVASTATIN CALCIUM
     Dosage: UNK
  9. AMITRIPTYLINE [Concomitant]
     Active Substance: AMITRIPTYLINE
     Dosage: UNK
  10. FLUOROURACIL. [Suspect]
     Active Substance: FLUOROURACIL
     Indication: RETROPERITONEAL CANCER
     Dosage: UNK
     Dates: end: 201005
  11. FOLINIC ACID [Suspect]
     Active Substance: LEUCOVORIN
     Indication: ADENOCARCINOMA OF APPENDIX
     Dates: start: 2007
  12. IRINOTECAN HCL [Suspect]
     Active Substance: IRINOTECAN HYDROCHLORIDE
     Indication: RETROPERITONEAL CANCER
     Dosage: UNK
     Dates: end: 201005
  13. IRINOTECAN HCL [Suspect]
     Active Substance: IRINOTECAN HYDROCHLORIDE
     Indication: METASTASES TO PERITONEUM
     Dosage: 6 CYCLES
     Dates: start: 201105
  14. XELODA [Suspect]
     Active Substance: CAPECITABINE
     Indication: RETROPERITONEAL CANCER
     Dosage: UNK
  15. AVASTIN [Suspect]
     Active Substance: BEVACIZUMAB
     Indication: ADENOCARCINOMA OF APPENDIX
     Dosage: UNK
     Dates: start: 2007
  16. HYDROCODONE [Concomitant]
     Active Substance: HYDROCODONE
     Dosage: UNK
  17. CELECOXIB. [Concomitant]
     Active Substance: CELECOXIB
     Dosage: UNK
  18. LORAZEPAM. [Concomitant]
     Active Substance: LORAZEPAM
     Dosage: UNK
  19. ZANTAC [Concomitant]
     Active Substance: RANITIDINE HYDROCHLORIDE
     Dosage: UNK
  20. BENADRYL [Concomitant]
     Active Substance: DIPHENHYDRAMINE HYDROCHLORIDE
     Dosage: UNK
  21. ZOFRAN [Concomitant]
     Active Substance: ONDANSETRON HYDROCHLORIDE
     Dosage: UNK
  22. IRINOTECAN HCL [Suspect]
     Active Substance: IRINOTECAN HYDROCHLORIDE
     Dosage: ONCE IN 2 WEEKS
  23. IRINOTECAN HCL [Suspect]
     Active Substance: IRINOTECAN HYDROCHLORIDE
     Dosage: ONCE IN 3 WEEKS
  24. LANSOPRAZOLE. [Suspect]
     Active Substance: LANSOPRAZOLE
     Dosage: UNK
  25. AVASTIN [Suspect]
     Active Substance: BEVACIZUMAB
     Indication: RETROPERITONEAL CANCER
     Dosage: UNK
     Dates: end: 201005
  26. VITAMIN D [Concomitant]
     Active Substance: CHOLECALCIFEROL
     Dosage: UNK
  27. ZOLPIDEM [Concomitant]
     Active Substance: ZOLPIDEM\ZOLPIDEM TARTRATE
     Dosage: UNK
  28. IRINOTECAN HCL [Suspect]
     Active Substance: IRINOTECAN HYDROCHLORIDE
     Indication: ADENOCARCINOMA OF APPENDIX
     Dosage: UNK
     Dates: start: 2007
  29. FOLINIC ACID [Suspect]
     Active Substance: LEUCOVORIN
     Indication: RETROPERITONEAL CANCER
     Dosage: UNK
     Dates: end: 201005
  30. MECLIZINE [Concomitant]
     Active Substance: MECLIZINE HYDROCHLORIDE
     Dosage: UNK

REACTIONS (2)
  - Hypomagnesaemia [Not Recovered/Not Resolved]
  - Diarrhoea [Not Recovered/Not Resolved]
